FAERS Safety Report 16899022 (Version 1)
Quarter: 2019Q4

REPORT INFORMATION
  Report Type: Spontaneous
  Country: US (occurrence: US)
  Receive Date: 20191008
  Receipt Date: 20191008
  Transmission Date: 20200122
  Serious: Yes (Other)
  Sender: FDA-Public Use
  Company Number: None

PATIENT
  Age: 54 Year
  Sex: Female
  Weight: 90.45 kg

DRUGS (2)
  1. DOCETAXEL. [Suspect]
     Active Substance: DOCETAXEL
     Indication: UTERINE CANCER
     Dosage: ?          OTHER FREQUENCY:EVERY 21 DAYS;?
     Route: 041
     Dates: start: 20190501, end: 20191008
  2. GEMCITABINE. [Suspect]
     Active Substance: GEMCITABINE
     Indication: UTERINE CANCER
     Dosage: ?          OTHER FREQUENCY:ON DAY 1+8;?
     Route: 041
     Dates: start: 20190501, end: 20191008

REACTIONS (1)
  - Disease progression [None]

NARRATIVE: CASE EVENT DATE: 20191007
